FAERS Safety Report 15984994 (Version 1)
Quarter: 2019Q1

REPORT INFORMATION
  Report Type: Spontaneous
  Country: US (occurrence: US)
  Receive Date: 20190220
  Receipt Date: 20190220
  Transmission Date: 20190418
  Serious: No
  Sender: FDA-Public Use
  Company Number: US-BAYER-2019-036374

PATIENT
  Age: 72 Year
  Sex: Male
  Weight: 86 kg

DRUGS (2)
  1. PSYLLIUM HYDROPHILIC MUCILLOID [Concomitant]
     Active Substance: PSYLLIUM HUSK
  2. MIRALAX [Suspect]
     Active Substance: POLYETHYLENE GLYCOL 3350
     Indication: GASTROINTESTINAL DISORDER
     Dosage: 1/6-1/8 OF A CAPFUL WITH 12OZ OF WATER, QD
     Route: 048
     Dates: start: 201901

REACTIONS (1)
  - Prescribed underdose [Unknown]

NARRATIVE: CASE EVENT DATE: 201901
